FAERS Safety Report 5591965-3 (Version None)
Quarter: 2008Q1

REPORT INFORMATION
  Report Type: 
  Country: None (occurrence: None)
  Receive Date: 20080115
  Receipt Date: 20080101
  Transmission Date: 20080703
  Serious: Yes (Other)
  Sender: FDA-Public Use
  Company Number: IL-ELI_LILLY_AND_COMPANY-IL200801000135

PATIENT
  Sex: Female
  Weight: 102 kg

DRUGS (6)
  1. BYETTA [Suspect]
     Dosage: 5 UG, DAILY (1/D)
     Route: 058
     Dates: start: 20071203, end: 20071220
  2. LANTUS [Concomitant]
     Indication: DIABETES MELLITUS
     Dosage: 60 U, DAILY (1/D)
     Route: 058
     Dates: start: 20061113
  3. NOVORAPID [Concomitant]
     Indication: DIABETES MELLITUS
     Dosage: 75 U, DAILY (1/D)
     Route: 058
     Dates: start: 20070910
  4. GLUCOMIN [Concomitant]
     Indication: DIABETES MELLITUS
     Dosage: 850 MG, 2/D
     Route: 048
     Dates: start: 20060529
  5. LIPITOR [Concomitant]
     Indication: HYPERLIPIDAEMIA
     Dosage: 40 MG, DAILY (1/D)
     Route: 048
     Dates: start: 20070507
  6. ATACAND [Concomitant]
     Indication: HYPERTENSION
     Dosage: 16 MG, DAILY (1/D)
     Route: 048
     Dates: start: 20060507

REACTIONS (1)
  - PANCREATITIS ACUTE [None]
